FAERS Safety Report 8517719-3 (Version None)
Quarter: 2012Q3

REPORT INFORMATION
  Report Type: 
  Country: None (occurrence: None)
  Receive Date: 20120718
  Receipt Date: 20120711
  Transmission Date: 20120928
  Serious: Yes (Hospitalization)
  Sender: FDA-Public Use
  Company Number: US-CELGENEUS-163-21880-12063850

PATIENT
  Sex: Female
  Weight: 65.9 kg

DRUGS (40)
  1. REVLIMID [Suspect]
     Dosage: 10 MILLIGRAM
     Route: 048
     Dates: start: 20120417, end: 20120701
  2. CARFILZOMIB [Suspect]
     Dosage: 45.6 MILLIGRAM
     Route: 065
     Dates: start: 20120315, end: 20120316
  3. HYDROCODONE [Concomitant]
     Dosage: 10 MILLIGRAM
     Route: 048
     Dates: start: 20111219
  4. LYRICA [Concomitant]
     Dosage: 100 MILLIGRAM
     Route: 048
     Dates: start: 20091208
  5. REVLIMID [Suspect]
     Indication: MULTIPLE MYELOMA
     Dosage: 25 MILLIGRAM
     Route: 048
     Dates: start: 20110922, end: 20111106
  6. REVLIMID [Suspect]
     Dosage: 25 MILLIGRAM
     Route: 048
     Dates: start: 20111219, end: 20120101
  7. DEXAMETHASONE [Suspect]
     Dosage: 20
     Route: 065
     Dates: start: 20111121, end: 20120315
  8. ARTIFICIAL TEARS [Concomitant]
     Dosage: 1
     Route: 061
     Dates: start: 20120131
  9. ZYRTEC [Concomitant]
     Dosage: 10 MILLIGRAM
     Route: 048
     Dates: start: 20111107
  10. DEXAMETHASONE [Suspect]
     Dosage: 12
     Route: 065
     Dates: start: 20120416, end: 20120702
  11. ASPIRIN [Concomitant]
     Indication: ANTICOAGULANT THERAPY
     Dosage: 325 MILLIGRAM
     Route: 048
     Dates: start: 20110920
  12. LEVAQUIN [Concomitant]
     Dosage: 500 MILLIGRAM
     Route: 048
     Dates: start: 20120514, end: 20120625
  13. METRONIDAZOLE [Concomitant]
     Indication: ABDOMINAL PAIN
     Dosage: 500 MILLIGRAM
     Route: 048
     Dates: start: 20120625
  14. MIRALAX [Concomitant]
     Indication: CONSTIPATION
     Dosage: 1PACK
     Route: 048
     Dates: start: 20091102
  15. VALTREX [Concomitant]
     Indication: ANTIVIRAL PROPHYLAXIS
     Dosage: 500 MILLIGRAM
     Route: 048
     Dates: start: 20110920
  16. ZOLOFT [Concomitant]
     Indication: DEPRESSION
     Dosage: 50 MILLIGRAM
     Route: 048
     Dates: start: 20090903
  17. DIPHENOXLATE W/ATROPINE [Concomitant]
     Indication: PROPHYLAXIS
     Dosage: 2 TABLET
     Route: 048
     Dates: start: 20120625, end: 20120625
  18. PIPERICILLIN [Concomitant]
     Indication: ABDOMINAL PAIN
     Dosage: 3.375 GRAM
     Route: 048
     Dates: start: 20120625
  19. DEXAMETHASONE [Suspect]
     Indication: MULTIPLE MYELOMA
     Dosage: 40 MILLIGRAM
     Route: 065
     Dates: start: 20110922, end: 20111114
  20. CIPROFLOXACIN HCL [Concomitant]
     Indication: ANTIBIOTIC PROPHYLAXIS
     Dosage: 500 MILLIGRAM
     Route: 048
     Dates: start: 20110920
  21. SODIUM CHLORIDE [Concomitant]
     Indication: DEHYDRATION
     Dosage: 1000 MILLILITER
     Route: 041
     Dates: start: 20120625
  22. VITAMIN C PLUS CALCIUM [Concomitant]
     Indication: ROUTINE HEALTH MAINTENANCE
     Dosage: 1 TABLET
     Route: 048
     Dates: start: 20101118
  23. XANAX [Concomitant]
     Indication: ANXIETY
     Dosage: .5 MILLIGRAM
     Route: 048
     Dates: start: 20111024
  24. REVLIMID [Suspect]
     Dosage: 15 MILLIGRAM
     Route: 048
     Dates: start: 20111121, end: 20111211
  25. CARFILZOMIB [Suspect]
     Dosage: 33.8 MILLIGRAM
     Route: 065
     Dates: start: 20120416, end: 20120530
  26. HYDROMORPHONE HCL [Concomitant]
     Indication: ABDOMINAL PAIN
     Dosage: 1 MILLIGRAM
     Route: 041
     Dates: start: 20120625, end: 20120625
  27. ONDANSETRON HYDROCHLORIDE [Concomitant]
     Indication: NAUSEA
     Dosage: 8 MILLIGRAM
     Route: 041
     Dates: start: 20120625
  28. ONDANSETRON HYDROCHLORIDE [Concomitant]
     Dosage: 4 MILLIGRAM
     Route: 041
     Dates: start: 20120625, end: 20120625
  29. PREVACID [Concomitant]
     Dosage: 30 MILLIGRAM
     Route: 048
     Dates: start: 20090903
  30. REVLIMID [Suspect]
     Dosage: 15 MILLIGRAM
     Route: 048
     Dates: start: 20120117, end: 20120322
  31. CARFILZOMIB [Suspect]
     Dosage: 33.8 MILLIGRAM
     Route: 065
     Dates: start: 20120611, end: 20120709
  32. DIPHENOXLATE W/ATROPINE [Concomitant]
     Dosage: 1 TABLET
     Route: 048
     Dates: start: 20120626
  33. MORPHINE [Concomitant]
     Indication: ABDOMINAL PAIN
     Dosage: 2 MILLIGRAM
     Route: 041
     Dates: start: 20120625
  34. SPIRIVA [Concomitant]
     Dosage: 1 PUFF
     Route: 045
     Dates: start: 20091230
  35. CARFILZOMIB [Suspect]
     Indication: MULTIPLE MYELOMA
     Dosage: 33.8 MILLIGRAM
     Route: 065
     Dates: start: 20110922, end: 20110923
  36. CARFILZOMIB [Suspect]
     Dosage: 45.6 MILLIGRAM
     Route: 065
     Dates: start: 20110929, end: 20120214
  37. MUCINEX [Concomitant]
     Dosage: 1 TABLET
     Route: 048
     Dates: start: 20091221
  38. MULTI-VITAMIN [Concomitant]
     Indication: SUPPLEMENTATION THERAPY
     Dosage: 1 TABLET
     Route: 048
     Dates: start: 20100819
  39. RANITIDINE [Concomitant]
     Indication: GASTRITIS
     Dosage: 150 MILLIGRAM
     Route: 048
     Dates: start: 20111219
  40. VANCOMYCIN HYCHLORIDE [Concomitant]
     Indication: ABDOMINAL PAIN
     Dosage: 1000 MILLIGRAM
     Route: 041
     Dates: start: 20120625

REACTIONS (2)
  - ABDOMINAL PAIN [None]
  - COLITIS [None]
